FAERS Safety Report 11258212 (Version 1)
Quarter: 2015Q2

REPORT INFORMATION
  Report Type: Spontaneous
  Country: US (occurrence: None)
  Receive Date: 20150617
  Receipt Date: 20150617
  Transmission Date: 20150821
  Serious: No
  Sender: FDA-Public Use
  Company Number: 2014TASUS000593

PATIENT
  Age: 39 Year
  Sex: Male

DRUGS (4)
  1. SYNTHROID [Concomitant]
     Active Substance: LEVOTHYROXINE SODIUM
  2. ANDRODERM [Concomitant]
     Active Substance: TESTOSTERONE
  3. HETLIOZ [Suspect]
     Active Substance: TASIMELTEON
     Indication: CIRCADIAN RHYTHM SLEEP DISORDER
     Dates: start: 20141110
  4. XARELTO [Concomitant]
     Active Substance: RIVAROXABAN

REACTIONS (2)
  - Abdominal distension [None]
  - Flatulence [None]

NARRATIVE: CASE EVENT DATE: 20141120
